FAERS Safety Report 7241076-6 (Version None)
Quarter: 2011Q1

REPORT INFORMATION
  Report Type: 
  Country: None (occurrence: None)
  Receive Date: 20110120
  Receipt Date: 20110120
  Transmission Date: 20110831
  Serious: Yes (Other)
  Sender: FDA-Public Use
  Company Number: None

PATIENT
  Age: 56 Year
  Sex: Female

DRUGS (2)
  1. RIBAVIRIN [Suspect]
     Indication: HEPATITIS C
     Dosage: 600 MG -} 400 BID PO
     Route: 048
     Dates: start: 20100610, end: 20101202
  2. RIBAVIRIN [Suspect]
     Indication: HEPATITIS C
     Dosage: 600 MG -} 400 BID PO
     Route: 048
     Dates: start: 20100706, end: 20100805

REACTIONS (1)
  - HAEMOGLOBIN DECREASED [None]
